FAERS Safety Report 16472527 (Version 1)
Quarter: 2019Q2

REPORT INFORMATION
  Report Type: Spontaneous
  Country: JP (occurrence: JP)
  Receive Date: 20190625
  Receipt Date: 20190625
  Transmission Date: 20190711
  Serious: Yes (Other)
  Sender: FDA-Public Use
  Company Number: JP-ACCORD-134585

PATIENT
  Age: 63 Year
  Sex: Female

DRUGS (4)
  1. CYCLOPHOSPHAMIDE/CYCLOPHOSPHAMIDE MONOHYDRATE [Suspect]
     Active Substance: CYCLOPHOSPHAMIDE
     Indication: CHEMOTHERAPY
     Dosage: 2 CYCLES
  2. CISPLATIN. [Suspect]
     Active Substance: CISPLATIN
     Indication: CHEMOTHERAPY
  3. DOXORUBICIN [Suspect]
     Active Substance: DOXORUBICIN
     Indication: CHEMOTHERAPY
  4. VINCRISTINE [Suspect]
     Active Substance: VINCRISTINE
     Indication: CHEMOTHERAPY

REACTIONS (1)
  - Autoimmune hepatitis [Recovering/Resolving]
